FAERS Safety Report 23390868 (Version 2)
Quarter: 2024Q1

REPORT INFORMATION
  Report Type: Report from Study
  Country: BR (occurrence: BR)
  Receive Date: 20240111
  Receipt Date: 20240208
  Transmission Date: 20240410
  Serious: Yes (Death)
  Sender: FDA-Public Use
  Company Number: BR-ABBVIE-5577976

PATIENT
  Age: 66 Year
  Sex: Male
  Weight: 78 kg

DRUGS (7)
  1. SKYRIZI [Suspect]
     Active Substance: RISANKIZUMAB-RZAA
     Indication: Product used for unknown indication
     Dosage: FORM STRENGTH: 75 MILLIGRAM
     Route: 058
     Dates: start: 20210702, end: 20240104
  2. ASTRAZENECA COVID-19 VACCINE [Concomitant]
     Active Substance: AZD-1222
     Indication: COVID-19 immunisation
     Dosage: SECOND DOSE , ONCE
     Route: 030
     Dates: start: 20210721, end: 20210721
  3. ASTRAZENECA COVID-19 VACCINE [Concomitant]
     Active Substance: AZD-1222
     Indication: COVID-19 immunisation
     Dosage: FIRST DOSE , ONCE
     Route: 030
     Dates: start: 20210428, end: 20210428
  4. BECLOMETHASONE\FORMOTEROL [Concomitant]
     Active Substance: BECLOMETHASONE\FORMOTEROL
     Indication: Chronic obstructive pulmonary disease
     Dosage: (BECLOMETHASONE DIPROPIONATE + FORMOTEROL FUMARATE), STRENGTH: 100 MILLIGRAM
     Route: 048
     Dates: start: 201605, end: 20210621
  5. SPIRIVA RESPIMAT [Concomitant]
     Active Substance: TIOTROPIUM BROMIDE
     Indication: Asthma
     Dosage: STRENGTH: 2.5  MILIGRAM
     Route: 048
     Dates: start: 201403
  6. ALBUTEROL [Concomitant]
     Active Substance: ALBUTEROL
     Indication: Angina pectoris
     Dosage: STRENGTH: 100 MILLIGRAM
     Route: 055
     Dates: start: 20211029
  7. FUROSEMIDE [Concomitant]
     Active Substance: FUROSEMIDE
     Indication: Chronic obstructive pulmonary disease
     Dosage: STRENGTH: 40 MILLIGRAM
     Route: 048
     Dates: start: 201603, end: 20210621

REACTIONS (1)
  - Death [Fatal]

NARRATIVE: CASE EVENT DATE: 20240104
